FAERS Safety Report 9900322 (Version 1)
Quarter: 2014Q1

REPORT INFORMATION
  Report Type: Report from Study
  Country: US (occurrence: US)
  Receive Date: 20140216
  Receipt Date: 20140216
  Transmission Date: 20141002
  Serious: Yes (Other)
  Sender: FDA-Public Use
  Company Number: US-ROCHE-1328503

PATIENT
  Sex: Male
  Weight: 70.37 kg

DRUGS (16)
  1. AVASTIN [Suspect]
     Indication: BRAIN NEOPLASM MALIGNANT
     Route: 042
     Dates: start: 20120515
  2. AVASTIN [Suspect]
     Route: 042
     Dates: start: 20120529
  3. AVASTIN [Suspect]
     Route: 042
     Dates: start: 20130304
  4. AVASTIN [Suspect]
     Route: 042
     Dates: start: 20120611
  5. ALOXI [Concomitant]
     Route: 042
  6. EMEND [Concomitant]
     Route: 042
  7. DECADRON [Concomitant]
     Route: 042
  8. CARBOPLATIN [Concomitant]
     Route: 042
  9. CARBOPLATIN [Concomitant]
     Route: 042
  10. DILANTIN [Concomitant]
  11. RAPAMUNE [Concomitant]
  12. NORCO [Concomitant]
     Dosage: TWICE EVERY 4 HRS
     Route: 065
  13. MS CONTIN [Concomitant]
     Route: 065
  14. GENTAMICIN [Concomitant]
     Route: 047
  15. CISPLATIN [Concomitant]
  16. TAXOL [Concomitant]

REACTIONS (9)
  - Eye irritation [Unknown]
  - Ocular hyperaemia [Unknown]
  - Eye discharge [Unknown]
  - Pain [Unknown]
  - Convulsion [Unknown]
  - Visual impairment [Unknown]
  - Decreased appetite [Unknown]
  - Neutropenia [Unknown]
  - Aphasia [Unknown]
